FAERS Safety Report 4508694-7 (Version None)
Quarter: 2004Q4

REPORT INFORMATION
  Report Type: 
  Country: None (occurrence: None)
  Receive Date: 20041123
  Receipt Date: 20040608
  Transmission Date: 20050328
  Serious: No
  Sender: FDA-Public Use
  Company Number: 2004-02446

PATIENT
  Age: 26 Year
  Sex: Female
  Weight: 129.1 kg

DRUGS (9)
  1. BUPROPION HYDROCHLORIDE [Suspect]
     Indication: DEPRESSION
     Dosage: 100MG UNKNOWN
     Route: 048
     Dates: start: 20040410, end: 20040510
  2. BENTYL [Concomitant]
     Indication: IRRITABLE BOWEL SYNDROME
     Dosage: 10MG TWICE PER DAY
     Route: 065
  3. SINGULAIR [Concomitant]
     Indication: ASTHMA
     Route: 065
  4. ORTHO-NOVUM [Concomitant]
  5. NEXIUM [Concomitant]
     Dosage: 40MG UNKNOWN
     Route: 065
  6. LOMOTIL [Concomitant]
     Indication: IRRITABLE BOWEL SYNDROME
     Route: 065
  7. TOPAMAX [Concomitant]
     Indication: BINGE EATING
     Dosage: 50MG PER DAY
     Route: 065
     Dates: start: 20040101
  8. CHROMIUM [Concomitant]
     Dosage: 400MG TWICE PER DAY
  9. PHENTERMINE [Concomitant]
     Indication: WEIGHT CONTROL
     Dosage: 37.5U UNKNOWN
     Route: 065
     Dates: start: 20040310

REACTIONS (8)
  - ABDOMINAL DISTENSION [None]
  - ABDOMINAL PAIN [None]
  - ARTHRALGIA [None]
  - DIARRHOEA [None]
  - MUSCLE CRAMP [None]
  - PHARMACEUTICAL PRODUCT COMPLAINT [None]
  - PYREXIA [None]
  - VOMITING [None]
